FAERS Safety Report 17675455 (Version 2)
Quarter: 2020Q2

REPORT INFORMATION
  Report Type: Spontaneous
  Country: US (occurrence: US)
  Receive Date: 20200416
  Receipt Date: 20200528
  Transmission Date: 20200714
  Serious: Yes (Other)
  Sender: FDA-Public Use
  Company Number: US-UCBSA-2019050228

PATIENT
  Sex: Female

DRUGS (2)
  1. CIMZIA [Suspect]
     Active Substance: CERTOLIZUMAB PEGOL
     Indication: RHEUMATOID ARTHRITIS
     Dosage: 200 MILLIGRAM, EV 2 WEEKS(QOW)
     Route: 058
     Dates: start: 201807
  2. CIMZIA [Suspect]
     Active Substance: CERTOLIZUMAB PEGOL
     Dosage: 400 MILLIGRAM
     Route: 058

REACTIONS (11)
  - Headache [Unknown]
  - Eye inflammation [Unknown]
  - Tremor [Unknown]
  - Gait disturbance [Unknown]
  - Salivary duct obstruction [Unknown]
  - Head discomfort [Unknown]
  - Muscular weakness [Unknown]
  - Hypertension [Unknown]
  - Lymphadenopathy [Unknown]
  - Fatigue [Unknown]
  - Hypoaesthesia [Unknown]
